FAERS Safety Report 14371298 (Version 1)
Quarter: 2018Q1

REPORT INFORMATION
  Report Type: Spontaneous
  Country: US (occurrence: US)
  Receive Date: 20180110
  Receipt Date: 20180110
  Transmission Date: 20180509
  Serious: Yes (Other)
  Sender: FDA-Public Use
  Company Number: US-TEVA-2018-US-845381

PATIENT

DRUGS (1)
  1. LEVALBUTEROL. [Suspect]
     Active Substance: LEVALBUTEROL
     Dosage: 1.25MG/3ML
     Route: 065

REACTIONS (4)
  - Dyspnoea [Unknown]
  - Throat tightness [Unknown]
  - Tachycardia [Unknown]
  - Vomiting [Unknown]
